FAERS Safety Report 9391619 (Version 1)
Quarter: 2013Q3

REPORT INFORMATION
  Report Type: Spontaneous
  Country: GB (occurrence: GB)
  Receive Date: 20130709
  Receipt Date: 20130709
  Transmission Date: 20140515
  Serious: Yes (Hospitalization, Disabling)
  Sender: FDA-Public Use
  Company Number: GB-TEVA-416810ISR

PATIENT
  Age: 100 Year
  Sex: Female
  Weight: 67 kg

DRUGS (8)
  1. ALENDRONIC ACID [Suspect]
     Indication: BONE DISORDER
     Route: 048
     Dates: start: 20130511, end: 20130518
  2. CLOPIDOGREL [Concomitant]
  3. ADCAL-D3 [Concomitant]
  4. CO-DYDRAMOL [Concomitant]
  5. SENNA [Concomitant]
  6. ORAMORPH [Concomitant]
  7. INDAPAMIDE [Concomitant]
  8. OMEPRAZOLE [Concomitant]

REACTIONS (6)
  - Lip ulceration [Recovered/Resolved]
  - Mouth ulceration [Recovered/Resolved]
  - Pain [Unknown]
  - Tongue ulceration [Recovered/Resolved]
  - Fluid intake reduced [Recovered/Resolved]
  - Hypophagia [Recovered/Resolved]
